FAERS Safety Report 7984271-0 (Version None)
Quarter: 2011Q4

REPORT INFORMATION
  Report Type: 
  Country: None (occurrence: None)
  Receive Date: 20111216
  Receipt Date: 20111205
  Transmission Date: 20120403
  Serious: Yes (Hospitalization)
  Sender: FDA-Public Use
  Company Number: AU-JNJFOC-20111202651

PATIENT
  Sex: Female

DRUGS (1)
  1. DOXORUBICIN HCL [Suspect]
     Indication: PRODUCT USED FOR UNKNOWN INDICATION
     Dosage: IN 25 ML
     Route: 042
     Dates: start: 20111128

REACTIONS (4)
  - MALAISE [None]
  - NONSPECIFIC REACTION [None]
  - PRODUCT QUALITY ISSUE [None]
  - DECREASED APPETITE [None]
